FAERS Safety Report 24702337 (Version 1)
Quarter: 2024Q4

REPORT INFORMATION
  Report Type: Spontaneous
  Country: US (occurrence: None)
  Receive Date: 20241205
  Receipt Date: 20241205
  Transmission Date: 20250114
  Serious: No
  Sender: Public
  Company Number: None

PATIENT
  Age: 78 Year
  Sex: Female

DRUGS (1)
  1. BEYFORTUS [Suspect]
     Active Substance: NIRSEVIMAB-ALIP
     Indication: Prophylaxis
     Dosage: 1 ML ONCE INTRAMUSCULAR
     Route: 030
     Dates: start: 20241120

REACTIONS (2)
  - Incorrect dose administered [None]
  - Product substitution issue [None]

NARRATIVE: CASE EVENT DATE: 20241120
